FAERS Safety Report 7181397 (Version 6)
Quarter: 2013Q3

REPORT INFORMATION
  Report Type: Spontaneous
  Country: US (occurrence: US)
  Receive Date: 20091119
  Receipt Date: 20130804
  Transmission Date: 20140515
  Serious: Yes (Hospitalization, Other)
  Sender: FDA-Public Use
  Company Number: US-ROCHE-649882

PATIENT
  Age: 16 Year
  Sex: Female
  Weight: 63 kg

DRUGS (4)
  1. ACCUTANE [Suspect]
     Indication: ACNE
     Route: 048
     Dates: start: 199104, end: 19910909
  2. ACCUTANE [Suspect]
     Route: 048
     Dates: start: 19980123, end: 19980223
  3. CLEOCIN [Concomitant]
     Indication: ACNE
  4. ERYTHROMYCIN [Concomitant]
     Indication: ACNE

REACTIONS (13)
  - Inflammatory bowel disease [Unknown]
  - Emotional disorder [Unknown]
  - Anxiety [Unknown]
  - Crohn^s disease [Unknown]
  - Suicidal ideation [Unknown]
  - Hypertriglyceridaemia [Recovered/Resolved]
  - Dry skin [Unknown]
  - Skin hyperpigmentation [Recovering/Resolving]
  - Stomatitis [Unknown]
  - Colitis ulcerative [Unknown]
  - Depression [Unknown]
  - Small intestinal obstruction [Unknown]
  - Small intestinal perforation [Unknown]
